FAERS Safety Report 22060457 (Version 1)
Quarter: 2023Q1

REPORT INFORMATION
  Report Type: Spontaneous
  Country: CH (occurrence: CH)
  Receive Date: 20230303
  Receipt Date: 20230303
  Transmission Date: 20230417
  Serious: Yes (Life-Threatening, Hospitalization, Other)
  Sender: FDA-Public Use
  Company Number: CH-BEH-2013036168

PATIENT
  Age: 48 Year
  Sex: Female
  Weight: 70 kg

DRUGS (4)
  1. FACTOR XIII CONCENTRATE (HUMAN) [Suspect]
     Active Substance: FACTOR XIII CONCENTRATE (HUMAN)
     Indication: Factor XIII deficiency
     Dosage: ROUTE ACCORDING TO SWISSMEDIC: INTRAVENOUS BOLUS, DOSE: 25 IU/KG
     Route: 042
     Dates: start: 20120802, end: 20120802
  2. FACTOR XIII CONCENTRATE (HUMAN) [Suspect]
     Active Substance: FACTOR XIII CONCENTRATE (HUMAN)
     Dosage: 250 INTERNATIONAL UNIT, BID
     Route: 042
     Dates: start: 20120802, end: 20120802
  3. FACTOR XIII CONCENTRATE (HUMAN) [Suspect]
     Active Substance: FACTOR XIII CONCENTRATE (HUMAN)
     Dosage: 750 INTERNATIONAL UNIT, 10IU/KG (AT AGE 58)
     Route: 065
  4. FACTOR XIII CONCENTRATE (HUMAN) [Suspect]
     Active Substance: FACTOR XIII CONCENTRATE (HUMAN)
     Dosage: 1750 INTERNATIONAL UNIT, 20IU/KG (EVERY 3 WEEKS)
     Route: 065

REACTIONS (4)
  - Deep vein thrombosis [Recovered/Resolved]
  - Pulmonary embolism [Recovered/Resolved]
  - Pulmonary embolism [Unknown]
  - Deep vein thrombosis [Unknown]

NARRATIVE: CASE EVENT DATE: 20120809
